FAERS Safety Report 17202407 (Version 1)
Quarter: 2019Q4

REPORT INFORMATION
  Report Type: Report from Study
  Country: US (occurrence: US)
  Receive Date: 20191226
  Receipt Date: 20191226
  Transmission Date: 20200122
  Serious: Yes (Hospitalization)
  Sender: FDA-Public Use
  Company Number: US-ASTELLAS-2019US051146

PATIENT
  Age: 74 Year
  Sex: Male

DRUGS (1)
  1. ENZALUTAMIDE [Suspect]
     Active Substance: ENZALUTAMIDE
     Indication: HORMONE-REFRACTORY PROSTATE CANCER
     Route: 048
     Dates: start: 20191129

REACTIONS (8)
  - Dyspnoea [Unknown]
  - Pain in extremity [Recovering/Resolving]
  - Abdominal distension [Recovering/Resolving]
  - Sleep disorder [Unknown]
  - Liver disorder [Unknown]
  - Back pain [Unknown]
  - Abdominal pain upper [Recovering/Resolving]
  - Pain in extremity [Unknown]

NARRATIVE: CASE EVENT DATE: 20191220
